FAERS Safety Report 9367724 (Version 1)
Quarter: 2013Q2

REPORT INFORMATION
  Report Type: Spontaneous
  Country: US (occurrence: US)
  Receive Date: 20130625
  Receipt Date: 20130625
  Transmission Date: 20140414
  Serious: No
  Sender: FDA-Public Use
  Company Number: US-ASTELLAS-2012US007769

PATIENT
  Age: 76 Year
  Sex: Female
  Weight: 89 kg

DRUGS (3)
  1. VESICARE [Suspect]
     Indication: HYPERTONIC BLADDER
     Dosage: 5 MG, UID/QD
     Route: 048
     Dates: start: 20120905, end: 20120910
  2. UNSPECIFIED MEDICATION [Concomitant]
     Indication: PRODUCT USED FOR UNKNOWN INDICATION
     Dosage: UNK
     Route: 065
  3. UNSPECIFIED MEDICATION [Concomitant]
     Indication: NEUROPATHY PERIPHERAL

REACTIONS (3)
  - Headache [Unknown]
  - Local swelling [Unknown]
  - Urinary retention [Unknown]
